FAERS Safety Report 10223774 (Version 2)
Quarter: 2014Q2

REPORT INFORMATION
  Report Type: Spontaneous
  Country: US (occurrence: US)
  Receive Date: 20140609
  Receipt Date: 20140609
  Transmission Date: 20141212
  Serious: No
  Sender: FDA-Public Use
  Company Number: US-DRREDDYS-USA/USA/14/0038971

PATIENT
  Age: 56 Year
  Sex: Female

DRUGS (3)
  1. FEXOFENADINE HCL  OTC [Suspect]
     Indication: HYPERSENSITIVITY
     Route: 048
     Dates: start: 201401
  2. NEXIUM [Concomitant]
     Indication: GASTROOESOPHAGEAL REFLUX DISEASE
     Route: 065
  3. CLOBETASOL [Concomitant]
     Indication: ECZEMA
     Route: 065

REACTIONS (1)
  - Rash pruritic [Not Recovered/Not Resolved]
